FAERS Safety Report 9231987 (Version 1)
Quarter: 2013Q2

REPORT INFORMATION
  Report Type: Spontaneous
  Country: GB (occurrence: GB)
  Receive Date: 20130415
  Receipt Date: 20130415
  Transmission Date: 20140414
  Serious: Yes (Death, Hospitalization)
  Sender: FDA-Public Use
  Company Number: PHHY2013GB035106

PATIENT
  Sex: Female

DRUGS (2)
  1. METFORMIN [Suspect]
     Indication: TYPE 1 DIABETES MELLITUS
     Dosage: UNK UKN, UNK
     Route: 048
  2. GLICLAZIDE [Suspect]
     Dosage: UNK UKN, UNK
     Route: 048

REACTIONS (4)
  - Death [Fatal]
  - Diabetic ketoacidosis [Unknown]
  - Blood glucose increased [Unknown]
  - Ketonuria [Unknown]
